FAERS Safety Report 10400974 (Version 2)
Quarter: 2014Q3

REPORT INFORMATION
  Report Type: Report from Study
  Country: AR (occurrence: AR)
  Receive Date: 20140821
  Receipt Date: 20140916
  Transmission Date: 20150326
  Serious: Yes (Hospitalization, Other)
  Sender: FDA-Public Use
  Company Number: PHHY2014AR104238

PATIENT
  Age: 59 Year
  Sex: Female

DRUGS (2)
  1. DIOVAN [Suspect]
     Active Substance: VALSARTAN
     Indication: HYPERTENSION
     Dosage: 160 MG, DAILY
     Route: 048
     Dates: end: 201401
  2. DIOVAN [Suspect]
     Active Substance: VALSARTAN
     Dosage: 320 MG, UNK
     Route: 048
     Dates: start: 20140819

REACTIONS (4)
  - Tooth infection [Recovered/Resolved]
  - Laryngeal oedema [Recovered/Resolved]
  - Infection [Recovered/Resolved]
  - Blood pressure fluctuation [Recovered/Resolved]

NARRATIVE: CASE EVENT DATE: 201401
